FAERS Safety Report 5132903-7 (Version None)
Quarter: 2006Q4

REPORT INFORMATION
  Report Type: 
  Country: None (occurrence: None)
  Receive Date: 20061023
  Receipt Date: 20060824
  Transmission Date: 20070319
  Serious: Yes (Other)
  Sender: FDA-Public Use
  Company Number: US-AVENTIS-200617246US

PATIENT
  Age: 70 Year
  Sex: Male

DRUGS (9)
  1. FUROSEMIDE [Suspect]
     Route: 048
  2. INSULIN [Concomitant]
     Dosage: DOSE: UNKNOWN
  3. AMIODARONE HCL [Concomitant]
     Dosage: DOSE: UNKNOWN
  4. DIGOXIN [Concomitant]
     Dosage: DOSE: UNKNOWN
  5. LOSARTAN POSTASSIUM [Concomitant]
     Dosage: DOSE: UNKNOWN
  6. METOPROLOL [Concomitant]
     Dosage: DOSE: UNKNOWN
  7. LANSOPRAZOLE [Concomitant]
     Dosage: DOSE: UNKNOWN
  8. ZOLPIDEM TARTRATE [Concomitant]
     Dosage: DOSE: UNKNOWN
  9. FERROUS SULFATE TAB [Concomitant]
     Dosage: DOSE: UNKNOWN

REACTIONS (5)
  - BLISTER [None]
  - CELLULITIS [None]
  - ERYTHEMA [None]
  - OEDEMA [None]
  - PEMPHIGOID [None]
